FAERS Safety Report 24989046 (Version 1)
Quarter: 2025Q1

REPORT INFORMATION
  Report Type: Other
  Country: ES (occurrence: ES)
  Receive Date: 20250220
  Receipt Date: 20250220
  Transmission Date: 20250409
  Serious: Yes (Other)
  Sender: BIOCON
  Company Number: None

PATIENT

DRUGS (3)
  1. ADALIMUMAB [Suspect]
     Active Substance: ADALIMUMAB
     Indication: Crohn^s disease
     Dosage: 40 MILLIGRAM, QWEEK
     Route: 058
     Dates: start: 202306, end: 20240626
  2. ADALIMUMAB [Concomitant]
     Active Substance: ADALIMUMAB
     Indication: Crohn^s disease
     Dosage: 40 MILLIGRAM, QD
     Route: 048
     Dates: start: 202001, end: 202109
  3. ADALIMUMAB [Concomitant]
     Active Substance: ADALIMUMAB
     Dosage: 80 MILLIGRAM, QWEEK
     Route: 058
     Dates: start: 202109, end: 202306

REACTIONS (1)
  - Dermatitis bullous [Not Recovered/Not Resolved]

NARRATIVE: CASE EVENT DATE: 20230501
